FAERS Safety Report 6189071-2 (Version None)
Quarter: 2009Q2

REPORT INFORMATION
  Report Type: 
  Country: None (occurrence: None)
  Receive Date: 20090513
  Receipt Date: 20090420
  Transmission Date: 20091009
  Serious: Yes (Other)
  Sender: FDA-Public Use
  Company Number: US-PFIZER INC-2009201771

PATIENT
  Sex: Female
  Weight: 51.247 kg

DRUGS (2)
  1. LYRICA [Suspect]
     Indication: FIBROMYALGIA
     Dosage: 50 MG, 1X/DAY
     Dates: start: 20080701
  2. BETAPACE [Concomitant]
     Indication: HEART DISEASE CONGENITAL
     Dosage: UNK

REACTIONS (5)
  - COGNITIVE DISORDER [None]
  - CONVULSION [None]
  - EUPHORIC MOOD [None]
  - FEELING ABNORMAL [None]
  - SUICIDE ATTEMPT [None]
